FAERS Safety Report 10872207 (Version 1)
Quarter: 2015Q1

REPORT INFORMATION
  Report Type: Spontaneous
  Country: US (occurrence: None)
  Receive Date: 20150223
  Receipt Date: 20150223
  Transmission Date: 20150721
  Serious: Yes (Disabling)
  Sender: FDA-Public Use
  Company Number: None

PATIENT
  Age: 65 Year
  Sex: Female
  Weight: 56.7 kg

DRUGS (9)
  1. MULTI VIT [Concomitant]
  2. CALCIUM [Concomitant]
     Active Substance: CALCIUM
  3. PROGESTERONE. [Concomitant]
     Active Substance: PROGESTERONE
  4. LEVOFLOXACIN. [Suspect]
     Active Substance: LEVOFLOXACIN
     Indication: LOWER RESPIRATORY TRACT INFECTION
     Dosage: 1 TAB
     Route: 048
     Dates: start: 20141224, end: 20141226
  5. LOVASTATIN. [Concomitant]
     Active Substance: LOVASTATIN
  6. ESTROGEL [Concomitant]
     Active Substance: ESTRADIOL
  7. OMEGA 6 FATTY ACIDS [Concomitant]
     Active Substance: OMEGA-6 FATTY ACIDS
  8. LEVOFLOXACIN. [Suspect]
     Active Substance: LEVOFLOXACIN
     Indication: PNEUMONIA
     Dosage: 1 TAB
     Route: 048
     Dates: start: 20141224, end: 20141226
  9. IBUPROFEN. [Concomitant]
     Active Substance: IBUPROFEN

REACTIONS (10)
  - Headache [None]
  - Musculoskeletal stiffness [None]
  - Insomnia [None]
  - Dizziness [None]
  - Tendon disorder [None]
  - Ligament disorder [None]
  - Pain [None]
  - Arthralgia [None]
  - Joint swelling [None]
  - Myalgia [None]

NARRATIVE: CASE EVENT DATE: 20141224
